FAERS Safety Report 19795212 (Version 2)
Quarter: 2021Q4

REPORT INFORMATION
  Report Type: Spontaneous
  Country: GR (occurrence: GR)
  Receive Date: 20210906
  Receipt Date: 20211007
  Transmission Date: 20220303
  Serious: Yes (Death, Hospitalization)
  Sender: FDA-Public Use
  Company Number: GR-PFIZER INC-202101100905

PATIENT
  Age: 76 Year
  Sex: Female

DRUGS (5)
  1. RITUXIMAB [Suspect]
     Active Substance: RITUXIMAB
     Indication: Raynaud^s phenomenon
     Dosage: 1 G
     Dates: start: 201807
  2. RITUXIMAB [Suspect]
     Active Substance: RITUXIMAB
     Indication: Arthritis
  3. RITUXIMAB [Suspect]
     Active Substance: RITUXIMAB
     Indication: Oesophageal disorder
  4. RITUXIMAB [Suspect]
     Active Substance: RITUXIMAB
     Indication: Myositis
  5. METHYLPREDNISOLONE [Concomitant]
     Active Substance: METHYLPREDNISOLONE
     Dosage: 4 MG

REACTIONS (2)
  - COVID-19 pneumonia [Fatal]
  - Multiple organ dysfunction syndrome [Fatal]
